FAERS Safety Report 11043123 (Version 2)
Quarter: 2015Q2

REPORT INFORMATION
  Report Type: Spontaneous
  Country: US (occurrence: US)
  Receive Date: 20150417
  Receipt Date: 20150520
  Transmission Date: 20150821
  Serious: Yes (Other)
  Sender: FDA-Public Use
  Company Number: US-JNJFOC-20150409434

PATIENT
  Age: 69 Year
  Sex: Female
  Weight: 39.46 kg

DRUGS (1)
  1. VISINE TEARS DRY EYE RELIEF [Suspect]
     Active Substance: GLYCERIN\HYPROMELLOSES\POLYETHYLENE GLYCOL 400
     Indication: EYE DISORDER
     Route: 047

REACTIONS (1)
  - Eye infection [Not Recovered/Not Resolved]
